FAERS Safety Report 25470756 (Version 1)
Quarter: 2025Q2

REPORT INFORMATION
  Report Type: Spontaneous
  Country: DE (occurrence: DE)
  Receive Date: 20250624
  Receipt Date: 20250624
  Transmission Date: 20250717
  Serious: Yes (Other)
  Sender: TEVA
  Company Number: DE-DCGMA-25205275

PATIENT
  Sex: Male
  Weight: 97 kg

DRUGS (2)
  1. RISPERIDONE [Suspect]
     Active Substance: RISPERIDONE
     Indication: Depression
     Route: 048
     Dates: start: 20240716, end: 20240912
  2. BIPERIDEN [Concomitant]
     Active Substance: BIPERIDEN
     Indication: Product used for unknown indication
     Route: 048
     Dates: start: 20240716, end: 20240912

REACTIONS (9)
  - Initial insomnia [Recovering/Resolving]
  - Chills [Recovering/Resolving]
  - Middle insomnia [Recovering/Resolving]
  - Cogwheel rigidity [Recovering/Resolving]
  - Ataxia [Recovering/Resolving]
  - Dyskinesia [Recovering/Resolving]
  - Tremor [Recovering/Resolving]
  - Restlessness [Recovering/Resolving]
  - Gynaecomastia [Recovering/Resolving]

NARRATIVE: CASE EVENT DATE: 20240911
